FAERS Safety Report 11189543 (Version 1)
Quarter: 2015Q2

REPORT INFORMATION
  Report Type: Spontaneous
  Country: FI (occurrence: None)
  Receive Date: 20150611
  Receipt Date: 20150611
  Transmission Date: 20150821
  Serious: Yes (Hospitalization)
  Sender: FDA-Public Use
  Company Number: 2015SGN00976

PATIENT
  Age: 59 Year
  Sex: Male

DRUGS (13)
  1. ONDANSETRON BLUEFISH (ONDANSETRON) [Concomitant]
  2. KEFEXIN (CEFALEXIN MONOHYDRATE) [Concomitant]
  3. OXYCONTIN [Concomitant]
     Active Substance: OXYCODONE HYDROCHLORIDE
  4. KALCIPOS-D (CALCIUM CARBONATE, COLECALCIFEROL) [Concomitant]
  5. VISCOTEARS (CARBOMER) [Concomitant]
  6. NEXIUM [Concomitant]
     Active Substance: ESOMEPRAZOLE MAGNESIUM
  7. INNOHEP [Concomitant]
     Active Substance: TINZAPARIN SODIUM
  8. AMLODIPIN ACTAVIS (AMLODIPINE MESILATE) [Concomitant]
  9. BISOPROLOL (BISOPROLOL) [Concomitant]
     Active Substance: BISOPROLOL
  10. BRENTUXIMAB VEDOTIN (BRENTUXIMAB VEDOTIN) INJECTION [Suspect]
     Active Substance: BRENTUXIMAB VEDOTIN
     Indication: MYCOSIS FUNGOIDES
     Route: 042
     Dates: start: 20141216, end: 20150518
  11. MYCOSTATIN [Concomitant]
     Active Substance: NYSTATIN
  12. COTRIM FORTE (SULFAMETHOXAZOLE, TRIMETHOPRIM) [Concomitant]
  13. VALAVIR (VALACICLOVIR HYDROCHLORIDE) [Concomitant]

REACTIONS (1)
  - Hearing impaired [None]

NARRATIVE: CASE EVENT DATE: 201412
